FAERS Safety Report 8309049-X (Version None)
Quarter: 2012Q2

REPORT INFORMATION
  Report Type: 
  Country: None (occurrence: None)
  Receive Date: 20120424
  Receipt Date: 20120416
  Transmission Date: 20120825
  Serious: Yes (Other)
  Sender: FDA-Public Use
  Company Number: US-ELI_LILLY_AND_COMPANY-US201203004400

PATIENT
  Sex: Male
  Weight: 71.7 kg

DRUGS (7)
  1. HUMALOG [Suspect]
     Dosage: 8 U, EACH EVENING
  2. HUMALOG [Suspect]
     Indication: DIABETES MELLITUS
     Dosage: 2 U, BID
  3. HUMALOG [Suspect]
     Dosage: 8 U, EACH EVENING
  4. LANTUS [Concomitant]
     Dosage: 14 U, EACH EVENING
  5. GLIPIZIDE [Concomitant]
     Dosage: 10 MG, QD
  6. HUMALOG [Suspect]
     Dosage: 2 U, BID
  7. INSULIN [Concomitant]

REACTIONS (4)
  - RETINAL VEIN OCCLUSION [None]
  - BLOOD GLUCOSE INCREASED [None]
  - BLINDNESS UNILATERAL [None]
  - GLAUCOMA [None]
